FAERS Safety Report 10938957 (Version 2)
Quarter: 2015Q2

REPORT INFORMATION
  Report Type: Spontaneous
  Country: US (occurrence: US)
  Receive Date: 20150321
  Receipt Date: 20150525
  Transmission Date: 20150821
  Serious: No
  Sender: FDA-Public Use
  Company Number: US-JNJFOC-20141012444

PATIENT
  Sex: Female

DRUGS (4)
  1. ASPIRIN. [Concomitant]
     Active Substance: ASPIRIN
     Indication: PRODUCT USED FOR UNKNOWN INDICATION
     Route: 065
  2. TOPAMAX [Suspect]
     Active Substance: TOPIRAMATE
     Indication: COMPLEX PARTIAL SEIZURES
     Route: 048
  3. SOMA [Concomitant]
     Active Substance: CARISOPRODOL
     Indication: MUSCLE TIGHTNESS
     Route: 065
  4. ARICEPT [Concomitant]
     Active Substance: DONEPEZIL HYDROCHLORIDE
     Indication: COGNITIVE DISORDER
     Route: 065

REACTIONS (1)
  - Drug intolerance [Unknown]
